FAERS Safety Report 7682281-4 (Version None)
Quarter: 2011Q3

REPORT INFORMATION
  Report Type: 
  Country: None (occurrence: None)
  Receive Date: 20110810
  Receipt Date: 20110728
  Transmission Date: 20111222
  Serious: Yes (Other)
  Sender: FDA-Public Use
  Company Number: 018862

PATIENT
  Age: 44 Year
  Sex: Female

DRUGS (1)
  1. MACUGEN [Suspect]
     Indication: DIABETIC RETINOPATHY
     Dosage: 0.3 MG, INTRAOCULAR
     Route: 031

REACTIONS (3)
  - VISUAL ACUITY REDUCED [None]
  - HYPHAEMA [None]
  - POST PROCEDURAL COMPLICATION [None]
